FAERS Safety Report 11155134 (Version 1)
Quarter: 2015Q2

REPORT INFORMATION
  Report Type: Spontaneous
  Country: CH (occurrence: CH)
  Receive Date: 20150602
  Receipt Date: 20150602
  Transmission Date: 20150821
  Serious: Yes (Disabling)
  Sender: FDA-Public Use
  Company Number: CH-JNJFOC-20150515985

PATIENT
  Age: 51 Year
  Sex: Female
  Weight: 102.2 kg

DRUGS (6)
  1. RISPERDAL [Suspect]
     Active Substance: RISPERIDONE
     Indication: SCHIZOAFFECTIVE DISORDER DEPRESSIVE TYPE
     Dosage: 1 MG IN THE MORNING AND 3 MG IN THE EVENING
     Route: 048
     Dates: start: 20150217
  2. RISPERDAL [Suspect]
     Active Substance: RISPERIDONE
     Indication: BORDERLINE PERSONALITY DISORDER
     Dosage: 1 MG IN THE MORNING AND 3 MG IN THE EVENING
     Route: 048
     Dates: start: 20150217
  3. TRITTICO [Concomitant]
     Active Substance: TRAZODONE HYDROCHLORIDE
     Indication: PRODUCT USED FOR UNKNOWN INDICATION
     Route: 065
  4. CYMBALTA [Concomitant]
     Active Substance: DULOXETINE HYDROCHLORIDE
     Indication: PRODUCT USED FOR UNKNOWN INDICATION
     Route: 065
  5. RIVOTRIL [Concomitant]
     Active Substance: CLONAZEPAM
     Indication: PRODUCT USED FOR UNKNOWN INDICATION
     Route: 065
  6. ZOLPIDEM [Concomitant]
     Active Substance: ZOLPIDEM\ZOLPIDEM TARTRATE
     Indication: PRODUCT USED FOR UNKNOWN INDICATION
     Route: 065

REACTIONS (4)
  - Galactorrhoea [Unknown]
  - Weight increased [Not Recovered/Not Resolved]
  - Suicidal ideation [Unknown]
  - Depressed mood [Unknown]

NARRATIVE: CASE EVENT DATE: 201502
